FAERS Safety Report 4395196-4 (Version None)
Quarter: 2004Q3

REPORT INFORMATION
  Report Type: 
  Country: None (occurrence: None)
  Receive Date: 20040706
  Receipt Date: 20040624
  Transmission Date: 20050211
  Serious: Yes (Other)
  Sender: FDA-Public Use
  Company Number: JP-2004-027616

PATIENT
  Sex: Male

DRUGS (1)
  1. MAGNEVIST [Suspect]
     Indication: NUCLEAR MAGNETIC RESONANCE IMAGING
     Dosage: 1 DOSE
     Dates: start: 20040601, end: 20040601

REACTIONS (4)
  - BLINDNESS TRANSIENT [None]
  - CONDITION AGGRAVATED [None]
  - CSF TEST ABNORMAL [None]
  - MENTAL DISORDER [None]
